FAERS Safety Report 10961640 (Version 1)
Quarter: 2015Q1

REPORT INFORMATION
  Report Type: Report from Study
  Country: US (occurrence: US)
  Receive Date: 20150327
  Receipt Date: 20150327
  Transmission Date: 20150721
  Serious: Yes (Hospitalization)
  Sender: FDA-Public Use
  Company Number: US-ABBVIE-15K-163-1363524-00

PATIENT
  Age: 57 Year
  Sex: Female

DRUGS (1)
  1. HUMIRA [Suspect]
     Active Substance: ADALIMUMAB
     Indication: CROHN^S DISEASE
     Route: 065
     Dates: start: 20111229

REACTIONS (14)
  - Discomfort [Unknown]
  - Muscle tightness [Unknown]
  - Muscle spasms [Not Recovered/Not Resolved]
  - Rotator cuff syndrome [Not Recovered/Not Resolved]
  - Gastrointestinal haemorrhage [Unknown]
  - Inflammation [Unknown]
  - Crohn^s disease [Recovered/Resolved]
  - Injection site bruising [Unknown]
  - Pain [Unknown]
  - Limb discomfort [Unknown]
  - Injection site haemorrhage [Unknown]
  - Muscle spasms [Recovered/Resolved]
  - Local swelling [Unknown]
  - Arthritis [Unknown]

NARRATIVE: CASE EVENT DATE: 2014
